FAERS Safety Report 4306485-3 (Version None)
Quarter: 2004Q1

REPORT INFORMATION
  Report Type: 
  Country: None (occurrence: None)
  Receive Date: 20040225
  Receipt Date: 20030731
  Transmission Date: 20041129
  Serious: No
  Sender: FDA-Public Use
  Company Number: US-BRISTOL-MYERS SQUIBB COMPANY-12359568

PATIENT
  Sex: Female

DRUGS (1)
  1. EXCEDRIN [Suspect]
     Indication: HEADACHE
     Dosage: TAKEN FOR YEARS
     Route: 048

REACTIONS (3)
  - INSOMNIA [None]
  - PALPITATIONS [None]
  - TREMOR [None]
